FAERS Safety Report 12207928 (Version 2)
Quarter: 2016Q1

REPORT INFORMATION
  Report Type: Spontaneous
  Country: RU (occurrence: RU)
  Receive Date: 20160324
  Receipt Date: 20160330
  Transmission Date: 20160526
  Serious: Yes (Other)
  Sender: FDA-Public Use
  Company Number: RU-ABBVIE-16P-251-1590962-00

PATIENT
  Sex: Male

DRUGS (2)
  1. ACC [Concomitant]
     Active Substance: ACETYLCYSTEINE
     Indication: PRODUCT USED FOR UNKNOWN INDICATION
  2. KLACID SR [Suspect]
     Active Substance: CLARITHROMYCIN
     Indication: RESPIRATORY TRACT INFECTION
     Dosage: SUSTAINED RELEASE; DAILY DOSE: 500MG
     Route: 065

REACTIONS (3)
  - Pneumonia [Recovering/Resolving]
  - Drug ineffective [Unknown]
  - Body temperature increased [Recovering/Resolving]
